FAERS Safety Report 5867211-X (Version None)
Quarter: 2008Q3

REPORT INFORMATION
  Report Type: 
  Country: None (occurrence: None)
  Receive Date: 20080829
  Receipt Date: 20080829
  Transmission Date: 20090109
  Serious: Yes (Hospitalization)
  Sender: FDA-Public Use
  Company Number: None

PATIENT
  Sex: Female
  Weight: 99.3377 kg

DRUGS (2)
  1. DICLOFENAC SODIUM [Suspect]
     Indication: ARTHRITIS
     Dosage: 100 MG ONCE A DAY PO
     Route: 048
  2. DICLOFENAC SODIUM [Suspect]
     Indication: CONTUSION
     Dosage: 100 MG ONCE A DAY PO
     Route: 048

REACTIONS (4)
  - ERYTHEMA [None]
  - EYE SWELLING [None]
  - PRURITUS GENERALISED [None]
  - RASH [None]
